FAERS Safety Report 5948239-8 (Version None)
Quarter: 2008Q4

REPORT INFORMATION
  Report Type: 
  Country: None (occurrence: None)
  Receive Date: 20081111
  Receipt Date: 20081028
  Transmission Date: 20090506
  Serious: Yes (Other)
  Sender: FDA-Public Use
  Company Number: FR-ELI_LILLY_AND_COMPANY-FR200809006040

PATIENT
  Age: 58 Year
  Sex: Female

DRUGS (6)
  1. FORTEO [Suspect]
     Indication: OSTEOPOROSIS
     Dosage: 20 UG, DAILY (1/D)
     Route: 058
     Dates: start: 20070221, end: 20080821
  2. DOLIPRANE [Concomitant]
     Indication: PAIN
     Dosage: 100 MG, 3/D
     Route: 048
  3. TOPALGIC [Concomitant]
     Indication: PAIN
     Dosage: 150 MG, 2/D
     Route: 048
  4. CORTANCYL [Concomitant]
     Indication: ASTHMATIC CRISIS
     Dosage: 20 MG, DAILY (1/D)
     Route: 048
  5. CALTRATE [Concomitant]
     Dosage: 2 D/F, DAILY (1/D)
     Route: 048
  6. CORTICOSTEROID NOS [Concomitant]
     Dosage: UNK, UNKNOWN
     Route: 065

REACTIONS (1)
  - OSTEONECROSIS [None]
